FAERS Safety Report 6401619-9 (Version None)
Quarter: 2009Q4

REPORT INFORMATION
  Report Type: 
  Country: None (occurrence: None)
  Receive Date: 20091015
  Receipt Date: 20091008
  Transmission Date: 20100525
  Serious: Yes (Other)
  Sender: FDA-Public Use
  Company Number: US-AVENTIS-200921026GDDC

PATIENT
  Age: 76 Year
  Sex: Male
  Weight: 95.9 kg

DRUGS (11)
  1. TAXOTERE [Suspect]
     Route: 042
     Dates: start: 20090610, end: 20090902
  2. PREDNISONE [Suspect]
     Route: 048
     Dates: start: 20090610, end: 20090922
  3. CODE UNBROKEN [Suspect]
     Route: 048
     Dates: start: 20090610, end: 20090922
  4. DEXAMETHASONE 0.5MG TAB [Suspect]
     Dosage: DOSE: UNK
     Route: 048
     Dates: start: 20090610
  5. AMLODIPINE [Concomitant]
     Route: 048
  6. GOSERELIN ACETATE [Concomitant]
  7. DOCUSATE [Concomitant]
     Route: 048
  8. CYANOCOBALAMIN [Concomitant]
     Dosage: DOSE: 1000 MCG/ML
     Route: 030
  9. PROCHLORPERAZINE MALEATE [Concomitant]
     Dosage: DOSE: 10 MG Q6H
     Route: 048
  10. OMEPRAZOLE [Concomitant]
     Route: 048
  11. FUROSEMIDE [Concomitant]
     Route: 048

REACTIONS (1)
  - CEREBRAL ISCHAEMIA [None]
